FAERS Safety Report 4648436-8 (Version None)
Quarter: 2005Q2

REPORT INFORMATION
  Report Type: 
  Country: None (occurrence: None)
  Receive Date: 20050427
  Receipt Date: 20050412
  Transmission Date: 20051028
  Serious: Yes (Hospitalization)
  Sender: FDA-Public Use
  Company Number: JP_030701272

PATIENT
  Age: 81 Year
  Sex: Male
  Weight: 44 kg

DRUGS (7)
  1. PERMAX [Suspect]
     Indication: PARKINSON'S DISEASE
     Dosage: 750 MG
     Dates: start: 19981201, end: 20030604
  2. MENESIT [Concomitant]
  3. DOPS (DROXIDOPA) [Concomitant]
  4. SYMMETREL [Concomitant]
  5. SELBEX (TEPRENONE) [Concomitant]
  6. CARBIDOPA W/LEVODOPA) [Concomitant]
  7. BROMOCRIPTINE MESYLATE [Concomitant]

REACTIONS (27)
  - ABASIA [None]
  - ASPIRATION [None]
  - BLOOD LACTATE DEHYDROGENASE INCREASED [None]
  - BLOOD PH INCREASED [None]
  - BLOOD PRESSURE DIASTOLIC INCREASED [None]
  - CHEST X-RAY ABNORMAL [None]
  - DYSPHAGIA [None]
  - EOSINOPHIL PERCENTAGE INCREASED [None]
  - HALLUCINATION [None]
  - HEART RATE IRREGULAR [None]
  - LABORATORY TEST ABNORMAL [None]
  - LYMPHOCYTE PERCENTAGE INCREASED [None]
  - MASKED FACIES [None]
  - MOBILITY DECREASED [None]
  - MONOCYTE PERCENTAGE DECREASED [None]
  - MUSCLE ATROPHY [None]
  - MYOTONIA [None]
  - NEUTROPHIL COUNT INCREASED [None]
  - NEUTROPHIL PERCENTAGE DECREASED [None]
  - PLEURAL DISORDER [None]
  - PLEURAL EFFUSION [None]
  - PNEUMONIA ASPIRATION [None]
  - POVERTY OF SPEECH [None]
  - PRODUCTIVE COUGH [None]
  - PYREXIA [None]
  - SPEECH DISORDER [None]
  - THERAPY NON-RESPONDER [None]
